FAERS Safety Report 6657009-7 (Version None)
Quarter: 2010Q1

REPORT INFORMATION
  Report Type: 
  Country: None (occurrence: None)
  Receive Date: 20100330
  Receipt Date: 20100324
  Transmission Date: 20100710
  Serious: Yes (Death)
  Sender: FDA-Public Use
  Company Number: GB-TEVA-228948ISR

PATIENT
  Sex: Male

DRUGS (1)
  1. VALPROIC ACID [Suspect]
     Indication: INTENTIONAL OVERDOSE

REACTIONS (5)
  - BRADYCARDIA [None]
  - BRAIN OEDEMA [None]
  - HYPERAMMONAEMIA [None]
  - HYPERTENSION [None]
  - INTENTIONAL OVERDOSE [None]
